FAERS Safety Report 6891989-X (Version None)
Quarter: 2010Q3

REPORT INFORMATION
  Report Type: 
  Country: None (occurrence: None)
  Receive Date: 20100731
  Receipt Date: 20071127
  Transmission Date: 20110219
  Serious: No
  Sender: FDA-Public Use
  Company Number: US-PFIZER INC-2007100031

PATIENT
  Sex: Female
  Weight: 80 kg

DRUGS (3)
  1. AMLODIPINE [Suspect]
     Indication: HYPERTENSION
     Dates: start: 20070801, end: 20071127
  2. VALSARTAN [Concomitant]
  3. ALLOPURINOL [Concomitant]

REACTIONS (5)
  - ALOPECIA [None]
  - DISCOMFORT [None]
  - MALAISE [None]
  - RESTLESSNESS [None]
  - VERTIGO [None]
